FAERS Safety Report 8949812 (Version 1)
Quarter: 2012Q4

REPORT INFORMATION
  Report Type: 
  Country: GB (occurrence: GB)
  Receive Date: 20121206
  Receipt Date: 20121206
  Transmission Date: 20130627
  Serious: Yes (Hospitalization)
  Sender: FDA-Public Use
  Company Number: GB-ROCHE-1160148

PATIENT
  Age: 78 Year
  Sex: Male

DRUGS (7)
  1. NAPROXEN SODIUM [Suspect]
     Indication: MUSCULOSKELETAL PAIN
     Route: 048
     Dates: start: 20121106, end: 20121110
  2. IBUPROFEN [Suspect]
     Indication: PRODUCT USED FOR UNKNOWN INDICATION
     Route: 065
  3. CLOPIDOGREL [Concomitant]
     Route: 065
  4. DILTIAZEM [Concomitant]
  5. MST CONTINUS [Concomitant]
     Route: 065
  6. PERINDOPRIL [Concomitant]
     Route: 065
  7. TAMSULOSIN [Concomitant]
     Route: 065

REACTIONS (6)
  - Faeces discoloured [Recovering/Resolving]
  - Cold sweat [Recovering/Resolving]
  - Dizziness [Recovering/Resolving]
  - Abdominal pain upper [Recovering/Resolving]
  - Gastrointestinal haemorrhage [Recovering/Resolving]
  - Nausea [Recovering/Resolving]
